FAERS Safety Report 9372458 (Version 1)
Quarter: 2013Q2

REPORT INFORMATION
  Report Type: Spontaneous
  Country: IT (occurrence: None)
  Receive Date: 20130625
  Receipt Date: 20130625
  Transmission Date: 20140414
  Serious: Yes (Other)
  Sender: FDA-Public Use
  Company Number: 2013AP006023

PATIENT
  Age: 42 Year
  Sex: Male

DRUGS (4)
  1. LEVETIRACETAM [Suspect]
     Indication: EPILEPSY
     Route: 048
     Dates: start: 20130110, end: 20130120
  2. LEVETIRACETAM [Suspect]
     Route: 048
     Dates: start: 20130110, end: 20130120
  3. TOPIRAMATE (TOPIRAMATE) [Concomitant]
  4. FENOBARBITAL (PHENOBARBITAL) [Concomitant]

REACTIONS (3)
  - Convulsion [None]
  - Therapeutic response unexpected with drug substitution [None]
  - Underdose [None]
